FAERS Safety Report 7830284-9 (Version None)
Quarter: 2011Q4

REPORT INFORMATION
  Report Type: 
  Country: None (occurrence: None)
  Receive Date: 20111021
  Receipt Date: 20101109
  Transmission Date: 20120403
  Serious: Yes (Hospitalization)
  Sender: FDA-Public Use
  Company Number: DE-RANBAXY-2009RR-20509

PATIENT
  Age: 75 Year
  Sex: Female
  Weight: 67 kg

DRUGS (11)
  1. AMOXICILLIN [Suspect]
     Indication: HELICOBACTER TEST POSITIVE
     Dosage: 1000 MG, BID
     Route: 048
     Dates: start: 20080828, end: 20080906
  2. DIGITOXIN TAB [Concomitant]
     Indication: ATRIAL FIBRILLATION
     Dosage: 0.07 MG, QD
     Route: 048
     Dates: start: 20080529
  3. FEMARA [Concomitant]
     Indication: BREAST CANCER FEMALE
     Dosage: 2.5 MG, QD
     Route: 048
     Dates: start: 20071201
  4. BISOPROLOL [Concomitant]
     Indication: HYPERTENSION
     Dosage: 5 MG, QD
     Route: 048
     Dates: start: 19980101
  5. PANTOPRAZOLE SODIUM [Suspect]
     Indication: HELICOBACTER TEST POSITIVE
     Dosage: 40 MG, BID
     Route: 048
     Dates: start: 20080828, end: 20080906
  6. LEVOFLOXACIN [Suspect]
     Indication: HELICOBACTER TEST POSITIVE
     Dosage: 500 MG, BID
     Route: 048
     Dates: start: 20080828, end: 20080906
  7. ASPIRIN [Concomitant]
     Indication: THROMBOSIS PROPHYLAXIS
     Dosage: 100 MG, QD
     Route: 048
     Dates: start: 20050101, end: 20080908
  8. RAMIPRIL [Concomitant]
     Indication: HYPERTENSION
     Dosage: 2.5 MG, QD
     Route: 048
     Dates: start: 20080501
  9. SIMVA BASICS [Concomitant]
     Indication: HEPATIC STEATOSIS
     Dosage: 20 MG, QD
     Route: 048
     Dates: start: 20080529
  10. AMLODIPINE [Concomitant]
     Indication: HYPERTENSION
     Dosage: 5 MG, QD
     Route: 048
     Dates: start: 20080501
  11. SELENASE [Concomitant]
     Indication: PROPHYLAXIS
     Dosage: 50 UG, QD
     Route: 048
     Dates: start: 20020101, end: 20080908

REACTIONS (6)
  - GENERAL PHYSICAL HEALTH DETERIORATION [None]
  - ABDOMINAL PAIN UPPER [None]
  - DIZZINESS [None]
  - DIARRHOEA [None]
  - WEIGHT DECREASED [None]
  - GASTROINTESTINAL DISORDER [None]
